FAERS Safety Report 22745677 (Version 3)
Quarter: 2025Q4

REPORT INFORMATION
  Report Type: Spontaneous
  Country: EU (occurrence: EU)
  Receive Date: 20230725
  Receipt Date: 20251121
  Transmission Date: 20260117
  Serious: Yes (Hospitalization, Other)
  Sender: AUROBINDO
  Company Number: EU-ATRAL-20230154

PATIENT
  Age: 74 Year
  Sex: Male

DRUGS (2)
  1. AMOXICILLIN\CLAVULANIC ACID [Suspect]
     Active Substance: AMOXICILLIN\CLAVULANIC ACID
     Indication: Tinea pedis
     Dosage: UNK, UNKNOWN DOSAGE
     Route: 065
  2. CIPROFLOXACIN [Suspect]
     Active Substance: CIPROFLOXACIN
     Indication: Tinea pedis
     Dosage: UNK, UNKNOWN DOSAGE
     Route: 065

REACTIONS (4)
  - Clostridium difficile colitis [Recovered/Resolved]
  - Cutaneous vasculitis [Recovering/Resolving]
  - Diarrhoea [Recovered/Resolved]
  - Vasculitis [Recovered/Resolved]
